FAERS Safety Report 8008126-0 (Version None)
Quarter: 2011Q4

REPORT INFORMATION
  Report Type: 
  Country: None (occurrence: None)
  Receive Date: 20111227
  Receipt Date: 20111223
  Transmission Date: 20120403
  Serious: Yes (Other)
  Sender: FDA-Public Use
  Company Number: PHHY2010CA60754

PATIENT
  Sex: Female

DRUGS (8)
  1. SYNTHROID [Concomitant]
  2. CARBOCAL D [Concomitant]
  3. ZOLEDRONOC ACID [Suspect]
     Indication: OSTEOPOROSIS
     Dosage: UNK
     Route: 042
     Dates: start: 20090930
  4. MAGNESIUM HYDROXIDE TAB [Concomitant]
  5. ASAPHEN [Concomitant]
  6. LIPITOR [Concomitant]
  7. ZOLEDRONOC ACID [Suspect]
     Dosage: UNK
     Dates: start: 20101027
  8. XANAX [Concomitant]

REACTIONS (6)
  - MYALGIA [None]
  - BONE PAIN [None]
  - GAIT DISTURBANCE [None]
  - LIP SWELLING [None]
  - PARAESTHESIA [None]
  - SENSATION OF HEAVINESS [None]
